FAERS Safety Report 18841978 (Version 1)
Quarter: 2021Q1

REPORT INFORMATION
  Report Type: Spontaneous
  Country: TR (occurrence: TR)
  Receive Date: 20210204
  Receipt Date: 20210204
  Transmission Date: 20210419
  Serious: Yes (Other)
  Sender: FDA-Public Use
  Company Number: TR-TEVA-2021-TR-1877078

PATIENT
  Age: 6 Year
  Sex: Male

DRUGS (2)
  1. METHYLPHENIDATE. [Suspect]
     Active Substance: METHYLPHENIDATE
     Indication: ATTENTION DEFICIT HYPERACTIVITY DISORDER
     Dosage: THE DOSE WAS INCREASED TO 5 MG/G IN TWO DIVIDED DOSES
     Route: 065
  2. METHYLPHENIDATE. [Suspect]
     Active Substance: METHYLPHENIDATE
     Indication: AUTISM SPECTRUM DISORDER
     Dosage: 2.5 MILLIGRAM DAILY;
     Route: 065

REACTIONS (1)
  - Oculogyric crisis [Recovered/Resolved]
